FAERS Safety Report 9764561 (Version 2)
Quarter: 2013Q4

REPORT INFORMATION
  Report Type: Spontaneous
  Country: US (occurrence: US)
  Receive Date: 20131217
  Receipt Date: 20131217
  Transmission Date: 20140711
  Serious: Yes (Other)
  Sender: FDA-Public Use
  Company Number: US-RB-061077-13

PATIENT
  Age: 52 Year
  Sex: Female

DRUGS (2)
  1. DELSYM ADULT ORANGE LIQUID [Suspect]
     Indication: PRODUCT USED FOR UNKNOWN INDICATION
     Dosage: 10 ML ONCE ON 12-DEC-2013
     Route: 048
     Dates: start: 20131212
  2. PROZAC [Suspect]
     Indication: PRODUCT USED FOR UNKNOWN INDICATION

REACTIONS (6)
  - Balance disorder [Recovering/Resolving]
  - Speech disorder [Recovering/Resolving]
  - Disturbance in attention [Recovering/Resolving]
  - Confusional state [Recovering/Resolving]
  - Dysarthria [Recovering/Resolving]
  - Gait disturbance [Recovering/Resolving]
